FAERS Safety Report 13869806 (Version 2)
Quarter: 2017Q4

REPORT INFORMATION
  Report Type: Spontaneous
  Country: JP (occurrence: JP)
  Receive Date: 20170815
  Receipt Date: 20171115
  Transmission Date: 20180320
  Serious: Yes (Life-Threatening, Hospitalization, Other)
  Sender: FDA-Public Use
  Company Number: JP-009507513-1705JPN001036J

PATIENT
  Age: 75 Year
  Sex: Male

DRUGS (2)
  1. PANVITAN [Concomitant]
     Dosage: 1.0 MG, QD
     Route: 048
     Dates: start: 20161108, end: 20170424
  2. KEYTRUDA [Suspect]
     Active Substance: PEMBROLIZUMAB
     Indication: NON-SMALL CELL LUNG CANCER
     Dosage: 200 MG, Q3W
     Route: 041
     Dates: start: 20170419, end: 20170419

REACTIONS (2)
  - Interstitial lung disease [Recovered/Resolved]
  - Diabetes mellitus [Recovered/Resolved]

NARRATIVE: CASE EVENT DATE: 20170421
